FAERS Safety Report 10600569 (Version 2)
Quarter: 2014Q4

REPORT INFORMATION
  Report Type: Report from Study
  Country: US (occurrence: US)
  Receive Date: 20141124
  Receipt Date: 20141124
  Transmission Date: 20150529
  Serious: Yes (Hospitalization)
  Sender: FDA-Public Use
  Company Number: US-AUROBINDO-AUR-APL-2014-11586

PATIENT
  Age: 58 Year
  Sex: Male

DRUGS (2)
  1. SIMVASTATIN 40MG [Suspect]
     Active Substance: SIMVASTATIN
     Indication: PRODUCT USED FOR UNKNOWN INDICATION
     Dosage: 40 MG, UNK
     Route: 065
  2. DAPTOMYCIN. [Interacting]
     Active Substance: DAPTOMYCIN
     Indication: OSTEOMYELITIS
     Dosage: 8.9 MG/KG (750 MG), UNK
     Route: 065

REACTIONS (4)
  - Blood creatine phosphokinase increased [Unknown]
  - Drug interaction [Unknown]
  - Rhabdomyolysis [Recovered/Resolved]
  - Myalgia [Unknown]
